FAERS Safety Report 5078636-7 (Version None)
Quarter: 2006Q3

REPORT INFORMATION
  Report Type: 
  Country: None (occurrence: None)
  Receive Date: 20060808
  Receipt Date: 20060731
  Transmission Date: 20061208
  Serious: Yes (Death, Hospitalization)
  Sender: FDA-Public Use
  Company Number: 2006MP000888

PATIENT
  Age: 80 Year
  Sex: Male

DRUGS (3)
  1. AGGRASTAT [Suspect]
     Indication: MYOCARDIAL INFARCTION
     Dosage: IV
     Route: 042
     Dates: start: 20060706, end: 20060707
  2. ENOXAPARIN SODIUM [Suspect]
     Indication: MYOCARDIAL INFARCTION
     Dosage: 65 MG;BID;SC
     Route: 058
     Dates: start: 20060706, end: 20060707
  3. PRIMASPAN (ACETYLSALICYLIC ACID) [Suspect]
     Indication: CORONARY ARTERY DISEASE
     Dosage: 100 MG;QD;PO
     Route: 048
     Dates: end: 20060707

REACTIONS (3)
  - ASCITES [None]
  - HAEMATURIA [None]
  - HAEMODYNAMIC INSTABILITY [None]
